FAERS Safety Report 8786470 (Version 1)
Quarter: 2012Q4

REPORT INFORMATION
  Report Type: 
  Country: US (occurrence: US)
  Receive Date: 20120914
  Receipt Date: 20120914
  Transmission Date: 20130627
  Serious: Yes (Death)
  Sender: FDA-Public Use
  Company Number: US-INCYTE CORPORATION-2012IN001727

PATIENT
  Sex: Male

DRUGS (19)
  1. JAKAFI [Suspect]
     Dosage: 10 mg, bid
     Route: 048
  2. METOPROLOL [Concomitant]
     Dosage: 25 mg, UNK
  3. DIGOXIN [Concomitant]
     Dosage: 0.25 mg, UNK
  4. PLAVIX [Concomitant]
     Dosage: 75 mg, UNK
  5. LEXAPRO [Concomitant]
     Dosage: 10 mg, UNK
  6. LASIX [Concomitant]
     Dosage: 40 mg, UNK
  7. LEVOTHYROXINE [Concomitant]
     Dosage: 100 mcg, UNK
  8. PROCARDIA [Concomitant]
     Dosage: 100 mg, UNK
  9. XANAX [Concomitant]
     Dosage: 0.5 mg, UNK
  10. AMBIEN [Concomitant]
     Dosage: 6.25 mg, UNK
  11. OMEPRAZOLE [Concomitant]
     Dosage: 20 mg, UNK
  12. FOLIC ACID [Concomitant]
  13. IRON [Concomitant]
     Dosage: 18 UNK, UNK
  14. SPIRIVA [Concomitant]
  15. CLOBETASOL [Concomitant]
     Dosage: 0.05 %, UNK
  16. CALCIUM [Concomitant]
     Dosage: 500 mg, UNK
  17. VITAMIN C [Concomitant]
     Dosage: 500 mg, UNK
  18. ZINC [Concomitant]
     Dosage: 30 mg, UNK
  19. ALBUTEROL [Concomitant]

REACTIONS (1)
  - Death [Fatal]
